FAERS Safety Report 18593629 (Version 4)
Quarter: 2021Q3

REPORT INFORMATION
  Report Type: Report from Study
  Country: IT (occurrence: IT)
  Receive Date: 20201209
  Receipt Date: 20210811
  Transmission Date: 20211014
  Serious: Yes (Death, Hospitalization, Other)
  Sender: FDA-Public Use
  Company Number: IT-TAKEDA-2020TUS053429

PATIENT
  Sex: Male

DRUGS (1)
  1. HUMAN IMMUNOGLOBULIN; HYALURONIDASE [Suspect]
     Active Substance: HUMAN IMMUNOGLOBULIN G\HYALURONIDASE RECOMBINANT HUMAN
     Indication: CHRONIC LYMPHOCYTIC LEUKAEMIA
     Dosage: 30 GRAM, MONTHLY
     Route: 058
     Dates: start: 2020

REACTIONS (5)
  - Malignant neoplasm progression [Fatal]
  - Drug ineffective [Unknown]
  - Therapy cessation [Unknown]
  - General physical health deterioration [Unknown]
  - Condition aggravated [Fatal]
